FAERS Safety Report 9399291 (Version 1)
Quarter: 2013Q3

REPORT INFORMATION
  Report Type: Spontaneous
  Country: GB (occurrence: GB)
  Receive Date: 20130710
  Receipt Date: 20130710
  Transmission Date: 20140515
  Serious: Yes (Disabling, Other)
  Sender: FDA-Public Use
  Company Number: GB-DEXPHARM-20130420

PATIENT
  Age: 63 Year
  Sex: Male
  Weight: 59 kg

DRUGS (2)
  1. VORICONAZOLE [Suspect]
     Indication: CEREBRAL ASPERGILLOSIS
     Route: 042
     Dates: start: 20130227
  2. OMEPRAZOLE [Suspect]

REACTIONS (3)
  - Toxicity to various agents [None]
  - Drug level increased [None]
  - Drug interaction [None]
